FAERS Safety Report 4650942-7 (Version None)
Quarter: 2005Q2

REPORT INFORMATION
  Report Type: 
  Country: None (occurrence: None)
  Receive Date: 20050426
  Receipt Date: 20050302
  Transmission Date: 20051028
  Serious: Yes (Hospitalization)
  Sender: FDA-Public Use
  Company Number: 602070

PATIENT
  Sex: Female

DRUGS (4)
  1. GAMMAGARD S/D [Suspect]
     Dosage: INTRAVENOUS
     Route: 042
  2. BENADRYL [Concomitant]
  3. SOLU-CORTEF [Concomitant]
  4. ATIVAN [Concomitant]

REACTIONS (6)
  - BURSITIS [None]
  - CONSCIOUSNESS FLUCTUATING [None]
  - CONVULSION [None]
  - SKIN WARM [None]
  - UNRESPONSIVE TO VERBAL STIMULI [None]
  - VOMITING [None]
